FAERS Safety Report 22333321 (Version 1)
Quarter: 2023Q2

REPORT INFORMATION
  Report Type: Spontaneous
  Country: US (occurrence: None)
  Receive Date: 20230516
  Receipt Date: 20230516
  Transmission Date: 20230721
  Serious: Yes (Hospitalization)
  Sender: FDA-Public Use
  Company Number: None

PATIENT
  Sex: Female

DRUGS (3)
  1. OMNITROPE [Suspect]
     Active Substance: SOMATROPIN
     Indication: Turner^s syndrome
     Dosage: OTHER QUANTITY : 5MG/1.5ML;?FREQUENCY : DAILY;?INJECT 0.7 MG UNDER THE SKIN (SUBCUTANEOUS INJECTION)
     Route: 058
     Dates: start: 20230216
  2. OMNITROPE [Suspect]
     Active Substance: SOMATROPIN
     Dosage: FREQUENCY : DAILY;?
     Route: 058
  3. NORDITTROPIN [Concomitant]

REACTIONS (3)
  - Lymphoedema [None]
  - Wound [None]
  - Therapy interrupted [None]
